FAERS Safety Report 9687608 (Version 1)
Quarter: 2013Q4

REPORT INFORMATION
  Report Type: Spontaneous
  Country: US (occurrence: None)
  Receive Date: 20131113
  Receipt Date: 20131113
  Transmission Date: 20140711
  Serious: No
  Sender: FDA-Public Use
  Company Number: None

PATIENT
  Sex: Male
  Weight: 41 kg

DRUGS (1)
  1. GENERIC KAPRAY [Suspect]
     Indication: ATTENTION DEFICIT/HYPERACTIVITY DISORDER
     Dosage: 1 MG CLONRINE
     Route: 048

REACTIONS (6)
  - Depression [None]
  - Anger [None]
  - Abnormal behaviour [None]
  - Hypophagia [None]
  - Feeling abnormal [None]
  - Decreased activity [None]
